FAERS Safety Report 6412125-X (Version None)
Quarter: 2009Q4

REPORT INFORMATION
  Report Type: 
  Country: None (occurrence: None)
  Receive Date: 20091023
  Receipt Date: 20091016
  Transmission Date: 20100525
  Serious: Yes (Hospitalization)
  Sender: FDA-Public Use
  Company Number: JP-NOVOPROD-291684

PATIENT
  Age: 60 Year
  Sex: Female

DRUGS (7)
  1. PENFILL 50R CHU [Suspect]
     Indication: TYPE 2 DIABETES MELLITUS
     Dosage: 16 IU, QD
     Route: 058
     Dates: start: 20080218, end: 20090131
  2. PENFILL 50R CHU [Suspect]
     Dosage: 16 IU, QD
     Route: 058
     Dates: start: 20090302
  3. NOVORAPID CHU [Suspect]
     Indication: TYPE 2 DIABETES MELLITUS
     Dosage: 18 IU, QD
     Route: 058
     Dates: start: 20080516, end: 20090131
  4. NOVORAPID CHU [Suspect]
     Dosage: 6 IU, QD
     Route: 058
     Dates: start: 20090207
  5. NOVORAPID CHU [Suspect]
     Dosage: 18 IU, QD
     Route: 058
     Dates: start: 20090302
  6. BONALON                            /01220301/ [Concomitant]
     Dosage: 1 TAB, QD
     Route: 048
     Dates: start: 20080516
  7. LIPITOR [Concomitant]
     Dosage: 1 TAB, QD
     Route: 048
     Dates: start: 20080516

REACTIONS (2)
  - ALTERED STATE OF CONSCIOUSNESS [None]
  - HYPOGLYCAEMIC COMA [None]
